FAERS Safety Report 5520271-8 (Version None)
Quarter: 2007Q4

REPORT INFORMATION
  Report Type: 
  Country: None (occurrence: None)
  Receive Date: 20071117
  Receipt Date: 20071112
  Transmission Date: 20080405
  Serious: Yes (Other)
  Sender: FDA-Public Use
  Company Number: PHEH2006US08086

PATIENT
  Age: 48 Year
  Sex: Female
  Weight: 58.2 kg

DRUGS (1)
  1. ZOMETA [Suspect]
     Indication: METASTASES TO BONE
     Dosage: 4 MG IV MONTHLY
     Route: 042
     Dates: start: 20031002

REACTIONS (16)
  - ALVEOLAR OSTEITIS [None]
  - CERVIX CARCINOMA STAGE 0 [None]
  - CHILLS [None]
  - DECREASED APPETITE [None]
  - DISEASE PROGRESSION [None]
  - INFECTION [None]
  - LOOP ELECTROSURGICAL EXCISION PROCEDURE [None]
  - MALIGNANT NEOPLASM PROGRESSION [None]
  - METASTASES TO LIVER [None]
  - MUCOSAL INFLAMMATION [None]
  - OSTEONECROSIS [None]
  - PAIN IN JAW [None]
  - PERIPHERAL COLDNESS [None]
  - PHARYNGEAL OEDEMA [None]
  - PHARYNGOLARYNGEAL PAIN [None]
  - SALPINGO-OOPHORECTOMY BILATERAL [None]
